FAERS Safety Report 8642634 (Version 2)
Quarter: 2012Q4

REPORT INFORMATION
  Report Type: 
  Country: US (occurrence: US)
  Receive Date: 20120629
  Receipt Date: 20120828
  Transmission Date: 20130627
  Serious: Yes (Other)
  Sender: FDA-Public Use
  Company Number: US-PFIZER INC-2012152291

PATIENT
  Age: 46 Year
  Sex: Female
  Weight: 90.7 kg

DRUGS (4)
  1. EFFEXOR XR [Suspect]
     Indication: ANXIETY
     Dosage: UNK
  2. EFFEXOR XR [Suspect]
     Dosage: 150 mg, 1x/day
     Route: 048
  3. EFFEXOR XR [Suspect]
     Dosage: 150 mg, 1x/day
     Route: 048
  4. PRILOSEC [Concomitant]
     Indication: GASTROOESOPHAGEAL REFLUX DISEASE
     Dosage: UNK

REACTIONS (3)
  - Urinary incontinence [Not Recovered/Not Resolved]
  - Withdrawal syndrome [Recovered/Resolved]
  - Impaired driving ability [Recovered/Resolved]
